FAERS Safety Report 18594739 (Version 1)
Quarter: 2020Q4

REPORT INFORMATION
  Report Type: Spontaneous
  Country: TH (occurrence: TH)
  Receive Date: 20201209
  Receipt Date: 20201209
  Transmission Date: 20210114
  Serious: Yes (Other)
  Sender: FDA-Public Use
  Company Number: TH-AMNEAL PHARMACEUTICALS-2020-AMRX-03854

PATIENT
  Age: 52 Year
  Sex: Male

DRUGS (1)
  1. METFORMIN HYDROCHLORIDE ER [Suspect]
     Active Substance: METFORMIN HYDROCHLORIDE
     Indication: TYPE 2 DIABETES MELLITUS
     Dosage: 2550 MILLIGRAM, QD
     Route: 065

REACTIONS (5)
  - Pancytopenia [Recovered/Resolved]
  - Myocardial infarction [Unknown]
  - Folate deficiency [Recovered/Resolved]
  - Blood homocysteine increased [Unknown]
  - Vitamin B12 deficiency [Recovered/Resolved]
